FAERS Safety Report 10452630 (Version 2)
Quarter: 2014Q3

REPORT INFORMATION
  Report Type: Spontaneous
  Country: US (occurrence: None)
  Receive Date: 20140911
  Receipt Date: 20140919
  Transmission Date: 20150326
  Serious: Yes (Hospitalization)
  Sender: FDA-Public Use
  Company Number: 2014AP004456

PATIENT
  Age: 12 Year
  Sex: Male
  Weight: 65 kg

DRUGS (1)
  1. FERRIPROX [Suspect]
     Active Substance: DEFERIPRONE
     Indication: THALASSAEMIA
     Route: 048
     Dates: start: 20130925

REACTIONS (2)
  - Malaise [None]
  - Pain [None]

NARRATIVE: CASE EVENT DATE: 20140902
